FAERS Safety Report 11414804 (Version 1)
Quarter: 2015Q3

REPORT INFORMATION
  Report Type: Spontaneous
  Country: US (occurrence: US)
  Receive Date: 20150825
  Receipt Date: 20150825
  Transmission Date: 20151125
  Serious: Yes (Other)
  Sender: FDA-Public Use
  Company Number: US-ROCHE-1619351

PATIENT
  Sex: Male
  Weight: 91.71 kg

DRUGS (2)
  1. ESBRIET [Suspect]
     Active Substance: PIRFENIDONE
     Indication: IDIOPATHIC PULMONARY FIBROSIS
     Route: 048
     Dates: start: 20150630
  2. REVATIO [Concomitant]
     Active Substance: SILDENAFIL CITRATE

REACTIONS (7)
  - Diarrhoea [Unknown]
  - Haematochezia [Unknown]
  - Fatigue [Unknown]
  - Gastrointestinal haemorrhage [Unknown]
  - Decreased appetite [Unknown]
  - Haemorrhoids [Unknown]
  - Muscle strain [Unknown]
